FAERS Safety Report 9102318 (Version 3)
Quarter: 2013Q4

REPORT INFORMATION
  Report Type: Spontaneous
  Country: US (occurrence: US)
  Receive Date: 20130218
  Receipt Date: 20131108
  Transmission Date: 20140711
  Serious: Yes (Hospitalization, Other)
  Sender: FDA-Public Use
  Company Number: US-009507513-1302USA006746

PATIENT
  Sex: Female
  Weight: 71.2 kg

DRUGS (4)
  1. NUVARING [Suspect]
     Indication: CONTRACEPTION
     Dosage: UNK
     Route: 067
     Dates: start: 200802, end: 201109
  2. NUVARING [Suspect]
     Indication: MENSTRUATION IRREGULAR
  3. NUVARING [Suspect]
     Indication: CONTRACEPTION
     Dosage: UNK
     Route: 067
     Dates: start: 201112, end: 201207
  4. NUVARING [Suspect]
     Indication: MENSTRUAL DISORDER

REACTIONS (10)
  - Cerebrovascular accident [Recovering/Resolving]
  - Coagulopathy [Unknown]
  - Transient ischaemic attack [Unknown]
  - Mitral valve prolapse [Unknown]
  - Chest pain [Unknown]
  - Migraine [Unknown]
  - Off label use [Unknown]
  - Depression [Unknown]
  - Anxiety [Unknown]
  - Panic disorder [Unknown]
